FAERS Safety Report 6931175-8 (Version None)
Quarter: 2010Q3

REPORT INFORMATION
  Report Type: 
  Country: None (occurrence: None)
  Receive Date: 20100813
  Receipt Date: 20100802
  Transmission Date: 20110219
  Serious: Yes (Hospitalization)
  Sender: FDA-Public Use
  Company Number: 2010SP002053

PATIENT
  Age: 67 Year
  Sex: Female
  Weight: 68.0396 kg

DRUGS (40)
  1. ARFORMOTEROL TARTRATE [Suspect]
     Indication: CHRONIC OBSTRUCTIVE PULMONARY DISEASE
     Dates: start: 20091012, end: 20100629
  2. FUROSEMIDE [Concomitant]
  3. FISH OIL [Concomitant]
  4. COD LIVER OIL [Concomitant]
  5. PREDNISONE [Concomitant]
  6. RIZATRIPTAN BENZOATE [Concomitant]
  7. LIDOCAINE [Concomitant]
  8. SPIRIVA [Concomitant]
  9. VITAMIN D [Concomitant]
  10. LYRICA [Concomitant]
  11. HYDROCHLOROTHIAZIDE [Concomitant]
  12. FOSAMAX [Concomitant]
  13. FIBRE, DIETARY [Concomitant]
  14. MULTIVITAMINS PLUS IRON [Concomitant]
  15. CALCIUM [Concomitant]
  16. MAGNESIUM [Concomitant]
  17. ZINC [Concomitant]
  18. AMTRIPTYLINE [Concomitant]
  19. TRAZODONE HYDROCHLORIDE [Concomitant]
  20. TUMS [Concomitant]
  21. ALBUTEROL [Concomitant]
  22. POTASSIUM CHLORIDE [Concomitant]
  23. AVELOX [Concomitant]
  24. SEPTRA [Concomitant]
  25. LOVASTATIN [Concomitant]
  26. POLYETHYLENE GLYCOL [Concomitant]
  27. ESOMEPRAZOLE MAGNESIUM [Concomitant]
  28. OXYCODONE HCL AND ACETAMINOPHEN [Concomitant]
  29. ADAVAIR [Concomitant]
  30. XOPENEX HFA [Concomitant]
  31. VARENICLINE [Concomitant]
  32. SENNA-DOCUSATE [Concomitant]
  33. NYSTATIN [Concomitant]
  34. VITAMIN A [Concomitant]
  35. ESTRADIOL [Concomitant]
  36. SODIUM CHOLORIDE [Concomitant]
  37. ESCITALOPRAM [Concomitant]
  38. ACIPHEX [Concomitant]
  39. DICLOFENAC [Concomitant]
  40. PULMICORT [Concomitant]

REACTIONS (3)
  - ATELECTASIS [None]
  - BRONCHITIS [None]
  - PNEUMONIA [None]
